FAERS Safety Report 9147154 (Version 3)
Quarter: 2013Q3

REPORT INFORMATION
  Report Type: Spontaneous
  Country: US (occurrence: US)
  Receive Date: 20130307
  Receipt Date: 20130921
  Transmission Date: 20140515
  Serious: No
  Sender: FDA-Public Use
  Company Number: US-009507513-1302USA011499

PATIENT
  Sex: Female

DRUGS (13)
  1. COSOPT PF [Suspect]
     Indication: GLAUCOMA
     Dosage: 1 DROP IN EACH EYE TWICE A DAY
     Route: 047
     Dates: start: 201208
  2. COSOPT PF [Suspect]
     Dosage: 1 DROP IN EACH EYE TWICE A DAY
     Route: 047
  3. PRILOSEC [Concomitant]
  4. FUROSEMIDE [Concomitant]
  5. ASPIRIN [Concomitant]
  6. POTASSIUM (UNSPECIFIED) [Concomitant]
  7. OMEGA-3 MARINE TRIGLYCERIDES [Concomitant]
  8. IRON (UNSPECIFIED) [Concomitant]
  9. CALCIUM (UNSPECIFIED) [Concomitant]
  10. VITAMIN D (UNSPECIFIED) [Concomitant]
  11. SIMVASTATIN [Concomitant]
  12. GLUCOSAMINE [Concomitant]
  13. MAGNESIUM (UNSPECIFIED) [Concomitant]

REACTIONS (4)
  - Eyelid injury [Not Recovered/Not Resolved]
  - Medication error [Not Recovered/Not Resolved]
  - Product quality issue [Unknown]
  - Product closure removal difficult [Unknown]
